FAERS Safety Report 4833589-9 (Version None)
Quarter: 2005Q4

REPORT INFORMATION
  Report Type: 
  Country: None (occurrence: None)
  Receive Date: 20051114
  Receipt Date: 20050930
  Transmission Date: 20060501
  Serious: Yes (Death)
  Sender: FDA-Public Use
  Company Number: 2005AL004116

PATIENT
  Age: 19 Year

DRUGS (2)
  1. DIAZEPAM [Suspect]
     Dosage: INH
     Route: 055
  2. DIPHENOXYLATE [Suspect]
     Dosage: INK
     Route: 055

REACTIONS (4)
  - INCORRECT ROUTE OF DRUG ADMINISTRATION [None]
  - INTENTIONAL DRUG MISUSE [None]
  - OVERDOSE [None]
  - RESPIRATORY ARREST [None]
